FAERS Safety Report 6266167-8 (Version None)
Quarter: 2009Q3

REPORT INFORMATION
  Report Type: 
  Country: None (occurrence: None)
  Receive Date: 20090709
  Receipt Date: 20090703
  Transmission Date: 20100115
  Serious: Yes (Hospitalization)
  Sender: FDA-Public Use
  Company Number: 2009SP013794

PATIENT
  Age: 1 Year
  Sex: Female
  Weight: 11 kg

DRUGS (5)
  1. CELESTENE (BETAMETHASONE) (BETAMETHASONE) [Suspect]
     Indication: COUGH
     Dosage: 120 GTT; QD; PO
     Route: 048
     Dates: start: 20090601, end: 20090603
  2. ADVIL [Suspect]
     Indication: PYREXIA
     Dosage: 1 DF; PRN; PO
     Route: 048
     Dates: start: 20090528, end: 20090606
  3. NUREFLEX (IBUPROFEN) [Suspect]
     Indication: PYREXIA
     Dosage: 1 DF; PRN; PO
     Route: 048
     Dates: start: 20090601, end: 20090606
  4. HELICIDINE (HELICIDINE) [Suspect]
     Indication: COUGH
     Dosage: 5 ML; TID; PO
     Route: 048
     Dates: start: 20090529, end: 20090531
  5. TOPLEXIL (APLEXIL) [Suspect]
     Indication: COUGH
     Dosage: 5 ML; TID; PO
     Route: 048
     Dates: start: 20090529, end: 20090531

REACTIONS (1)
  - PNEUMOCOCCAL INFECTION [None]
